FAERS Safety Report 7972793-8 (Version None)
Quarter: 2011Q4

REPORT INFORMATION
  Report Type: 
  Country: None (occurrence: None)
  Receive Date: 20111213
  Receipt Date: 20111208
  Transmission Date: 20120403
  Serious: No
  Sender: FDA-Public Use
  Company Number: US-PFIZER INC-2011300759

PATIENT
  Sex: Female
  Weight: 112.47 kg

DRUGS (16)
  1. TRAZODONE [Concomitant]
     Indication: FIBROMYALGIA
     Dosage: 50 MG,  1-PM
  2. BUPROPION [Concomitant]
     Indication: DEPRESSION
     Dosage: 150, 2X/DAY
  3. VITAMIN E [Concomitant]
     Dosage: 190
  4. SYNTHROID [Concomitant]
     Indication: BASEDOW'S DISEASE
     Dosage: 225 UG, 1-AM
  5. PRILOSEC [Concomitant]
     Dosage: 1:AM
  6. VITAMIN D [Concomitant]
     Dosage: 2000, 1-AM
  7. LEXAPRO [Concomitant]
     Indication: FIBROMYALGIA
     Dosage: 20 MG,  1-AM
  8. WARFARIN [Concomitant]
     Indication: SURGERY
     Dosage: 1-7 PILLLS, PM
  9. GARLIC [Concomitant]
     Dosage: 1000, 1-PM
  10. VITAMIN B-12 [Concomitant]
     Dosage: 500 1-AM
  11. TETRACYCLINE HYDROCHLORIDE [Suspect]
     Dosage: UNK
  12. ACETYLSALICYLIC ACID [Concomitant]
     Dosage: UNK
  13. LYRICA [Suspect]
     Dosage: UNK
  14. SYNTHROID [Concomitant]
     Indication: RADIATION THYROIDITIS
  15. ASCORBIC ACID [Concomitant]
     Dosage: 1000 MG, 1-AM
  16. GLUCOSAMINE W/CHONDROITIN SULFATES [Concomitant]
     Dosage: 600 560 1-AM 1-PM

REACTIONS (2)
  - ARTHRALGIA [None]
  - MYALGIA [None]
